FAERS Safety Report 19020373 (Version 2)
Quarter: 2021Q1

REPORT INFORMATION
  Report Type: Spontaneous
  Country: US (occurrence: US)
  Receive Date: 20210317
  Receipt Date: 20210331
  Transmission Date: 20210420
  Serious: Yes (Hospitalization)
  Sender: FDA-Public Use
  Company Number: US-MISSION PHARMACAL COMPANY-2108102

PATIENT
  Age: 76 Year
  Sex: Male

DRUGS (1)
  1. THIOLA EC [Suspect]
     Active Substance: TIOPRONIN
     Indication: AMINO ACID METABOLISM DISORDER
     Route: 048
     Dates: start: 20191013

REACTIONS (2)
  - Drug ineffective [Recovering/Resolving]
  - Haemorrhage [Recovering/Resolving]
